FAERS Safety Report 19738019 (Version 2)
Quarter: 2021Q3

REPORT INFORMATION
  Report Type: Spontaneous
  Country: US (occurrence: US)
  Receive Date: 20210824
  Receipt Date: 20210929
  Transmission Date: 20211014
  Serious: Yes (Other)
  Sender: FDA-Public Use
  Company Number: US-ASTRAZENECA-2021A694120

PATIENT
  Sex: Female
  Weight: 169.2 kg

DRUGS (19)
  1. MAGNESIUM [Concomitant]
     Active Substance: MAGNESIUM
  2. FAMOTIDINE. [Concomitant]
     Active Substance: FAMOTIDINE
  3. METOPROLOL. [Concomitant]
     Active Substance: METOPROLOL
  4. NOVOLOG [Concomitant]
     Active Substance: INSULIN ASPART
  5. BYDUREON BCISE [Suspect]
     Active Substance: EXENATIDE
     Indication: DIABETES MELLITUS
     Route: 058
  6. GABAPENTIN. [Concomitant]
     Active Substance: GABAPENTIN
  7. OXYGEN. [Concomitant]
     Active Substance: OXYGEN
  8. BYDUREON [Suspect]
     Active Substance: EXENATIDE
     Route: 065
  9. JARDIANCE [Concomitant]
     Active Substance: EMPAGLIFLOZIN
  10. ER METFORMIN [Concomitant]
     Active Substance: METFORMIN HYDROCHLORIDE
  11. VITAMIN [Concomitant]
     Active Substance: VITAMINS
  12. VITAMIN D3 [Concomitant]
     Active Substance: CHOLECALCIFEROL
  13. LANTUS [Concomitant]
     Active Substance: INSULIN GLARGINE
  14. FUROSEMIDE. [Concomitant]
     Active Substance: FUROSEMIDE
  15. AMLODIPINE [Concomitant]
     Active Substance: AMLODIPINE BESYLATE
  16. PROAIR HFA [Concomitant]
     Active Substance: ALBUTEROL SULFATE
  17. GLIPIZIDE. [Concomitant]
     Active Substance: GLIPIZIDE
  18. POTASSIUM [Concomitant]
     Active Substance: POTASSIUM
  19. SYMBICORT [Concomitant]
     Active Substance: BUDESONIDE\FORMOTEROL FUMARATE DIHYDRATE

REACTIONS (6)
  - Hypermetropia [Unknown]
  - Device delivery system issue [Unknown]
  - Device leakage [Unknown]
  - Glaucoma [Unknown]
  - Cataract [Unknown]
  - Glycosylated haemoglobin increased [Unknown]
